FAERS Safety Report 20213889 (Version 3)
Quarter: 2022Q1

REPORT INFORMATION
  Report Type: Report from Study
  Country: IS (occurrence: IS)
  Receive Date: 20211221
  Receipt Date: 20220101
  Transmission Date: 20220424
  Serious: Yes (Disabling, Other)
  Sender: FDA-Public Use
  Company Number: IS-AMGEN-ISLCT2021200002

PATIENT
  Age: 41 Year
  Sex: Female

DRUGS (5)
  1. ERENUMAB [Suspect]
     Active Substance: ERENUMAB
     Indication: Migraine
     Dosage: 1 MILLILITER
     Route: 058
     Dates: start: 20210413
  2. IBUPROFEN [Concomitant]
     Active Substance: IBUPROFEN
     Dosage: 500-800 MILLIGRAM
     Dates: start: 1996
  3. FISH OIL [Concomitant]
     Active Substance: FISH OIL
     Dosage: 3 UNK
     Dates: start: 2000
  4. SUMATRIPTAN [Concomitant]
     Active Substance: SUMATRIPTAN
     Dosage: 20 MILLIGRAM
     Dates: start: 20181215
  5. MAGNESIUM CITRATE [Concomitant]
     Active Substance: MAGNESIUM CITRATE
     Dosage: 500 MILLIGRAM
     Dates: start: 20200815

REACTIONS (1)
  - Raynaud^s phenomenon [Not Recovered/Not Resolved]

NARRATIVE: CASE EVENT DATE: 20210615
